FAERS Safety Report 8789645 (Version 1)
Quarter: 2012Q4

REPORT INFORMATION
  Report Type: Spontaneous
  Country: US (occurrence: None)
  Receive Date: 20120905
  Receipt Date: 20120905
  Transmission Date: 20130627
  Serious: Yes (Hospitalization, Other)
  Sender: FDA-Public Use
  Company Number: FK201202500

PATIENT
  Age: 64 Year
  Sex: Male
  Weight: 93.9 kg

DRUGS (3)
  1. FLUDARABINE [Suspect]
     Indication: CHRONIC LYMPHOCYTIC LEUKAEMIA
     Dosage: 50 mg, days 1, 2, 3 q month, intravenous (not otherwise specified)
     Dates: start: 20110816, end: 20120105
  2. RITUXIMAB [Suspect]
     Indication: CHRONIC LYMPHOCYTIC LEUKAEMIA
     Route: 042
     Dates: start: 20110816, end: 20120103
  3. CYCLOPHOSPHAMIDE [Suspect]
     Indication: CHRONIC LYMPHOCYTIC LEUKAEMIA
     Dosage: 500 mg, days 1, 2, 3 q month, intravenous (not otherwise specified)
     Dates: start: 20110816, end: 20120105

REACTIONS (3)
  - Haemorrhagic anaemia [None]
  - Gastrointestinal haemorrhage [None]
  - Intussusception [None]
